FAERS Safety Report 9963901 (Version 1)
Quarter: 2014Q1

REPORT INFORMATION
  Report Type: Spontaneous
  Country: CN (occurrence: CN)
  Receive Date: 20140305
  Receipt Date: 20140305
  Transmission Date: 20141002
  Serious: Yes (Death, Other)
  Sender: FDA-Public Use
  Company Number: CN-CELGENEUS-035-21660-14023051

PATIENT
  Sex: 0

DRUGS (1)
  1. ABRAXANE [Suspect]
     Indication: NON-SMALL CELL LUNG CANCER
     Dosage: 130 MILLIGRAM/SQ. METER
     Route: 041

REACTIONS (10)
  - Neutropenia [Fatal]
  - Bone marrow failure [Unknown]
  - Vomiting [Unknown]
  - Non-small cell lung cancer [Unknown]
  - Neurotoxicity [Unknown]
  - Rash [Unknown]
  - Nausea [Unknown]
  - Alopecia [Unknown]
  - Myalgia [Unknown]
  - Fatigue [Unknown]
